FAERS Safety Report 8809878 (Version 1)
Quarter: 2012Q4

REPORT INFORMATION
  Report Type: 
  Country: FR (occurrence: FR)
  Receive Date: 20120926
  Receipt Date: 20120926
  Transmission Date: 20130627
  Serious: Yes (Hospitalization)
  Sender: FDA-Public Use
  Company Number: FR-ROCHE-1132299

PATIENT
  Age: 64 Year
  Sex: Male

DRUGS (8)
  1. ROCEPHINE [Suspect]
     Indication: MULTIPLE SCLEROSIS
     Route: 042
     Dates: start: 20120523, end: 20120602
  2. FLAGYL [Concomitant]
     Route: 065
     Dates: start: 20120531
  3. JOSIR [Concomitant]
  4. SEROPLEX [Concomitant]
  5. PRIMPERAN (FRANCE) [Concomitant]
  6. LOVENOX [Concomitant]
  7. FORTIMEL [Concomitant]
  8. OFLOCET [Concomitant]

REACTIONS (2)
  - Hepatitis [Recovered/Resolved]
  - Cholelithiasis [Recovered/Resolved]
